FAERS Safety Report 4397166-9 (Version None)
Quarter: 2004Q3

REPORT INFORMATION
  Report Type: 
  Country: None (occurrence: None)
  Receive Date: 20040714
  Receipt Date: 20040708
  Transmission Date: 20050211
  Serious: Yes (Other)
  Sender: FDA-Public Use
  Company Number: US-ROCHE-373696

PATIENT
  Age: 28 Year
  Sex: Female

DRUGS (2)
  1. KLONOPIN [Suspect]
     Indication: PANIC DISORDER
     Route: 048
     Dates: start: 20030615, end: 20040129
  2. VALIUM [Suspect]
     Indication: ANXIETY
     Route: 048
     Dates: end: 20040115

REACTIONS (3)
  - DRUG EXPOSURE DURING PREGNANCY [None]
  - PRE-ECLAMPSIA [None]
  - PREGNANCY [None]
